FAERS Safety Report 5673532-6 (Version None)
Quarter: 2008Q1

REPORT INFORMATION
  Report Type: 
  Country: None (occurrence: None)
  Receive Date: 20080319
  Receipt Date: 20080313
  Transmission Date: 20080703
  Serious: No
  Sender: FDA-Public Use
  Company Number: US-BAXTER-2008BH002304

PATIENT
  Age: 79 Year
  Sex: Female

DRUGS (2)
  1. HEPARIN SODIUM [Suspect]
     Indication: CHEST PAIN
     Route: 042
     Dates: start: 20080111, end: 20080111
  2. HEPARIN SODIUM [Suspect]
     Route: 042
     Dates: start: 20080111, end: 20080111

REACTIONS (2)
  - HEPARIN-INDUCED THROMBOCYTOPENIA [None]
  - MYOCARDIAL INFARCTION [None]
